FAERS Safety Report 19930093 (Version 3)
Quarter: 2021Q4

REPORT INFORMATION
  Report Type: Spontaneous
  Country: US (occurrence: US)
  Receive Date: 20211008
  Receipt Date: 20211216
  Transmission Date: 20220303
  Serious: Yes (Hospitalization, Other)
  Sender: FDA-Public Use
  Company Number: US-MLMSERVICE-20210920-3116038-1

PATIENT
  Age: 55 Year
  Sex: Female

DRUGS (3)
  1. DEXAMETHASONE [Suspect]
     Active Substance: DEXAMETHASONE
     Indication: Plasma cell myeloma
     Dosage: UNK(21 CYCLE)
     Route: 065
  2. CARFILZOMIB [Suspect]
     Active Substance: CARFILZOMIB
     Indication: Plasma cell myeloma
     Dosage: UNK(21 CYCLE)
     Route: 065
  3. LENALIDOMIDE [Suspect]
     Active Substance: LENALIDOMIDE
     Indication: Plasma cell myeloma
     Dosage: UNK(21 CYCLE)
     Route: 065

REACTIONS (13)
  - Hypoalbuminaemia [Unknown]
  - Acute kidney injury [Unknown]
  - Leukopenia [Unknown]
  - Immunoglobulins decreased [Unknown]
  - Blood phosphorus decreased [Unknown]
  - Hypokalaemia [Unknown]
  - Cryptosporidiosis infection [Unknown]
  - Lymphopenia [Unknown]
  - Thrombocytopenia [Unknown]
  - Pneumonia cryptococcal [Recovered/Resolved]
  - Anaemia [Unknown]
  - Hyponatraemia [Unknown]
  - Diarrhoea [Unknown]
